FAERS Safety Report 7451155-6 (Version None)
Quarter: 2011Q2

REPORT INFORMATION
  Report Type: 
  Country: None (occurrence: None)
  Receive Date: 20110422
  Receipt Date: 20110419
  Transmission Date: 20111010
  Serious: Yes (Death, Life-Threatening, Disabling, Other)
  Sender: FDA-Public Use
  Company Number: 2008SP007378

PATIENT
  Age: 60 Year
  Sex: Male

DRUGS (5)
  1. PLAVIX [Concomitant]
  2. ASPIRIN [Concomitant]
  3. HEPARIN [Suspect]
     Indication: PRODUCT USED FOR UNKNOWN INDICATION
  4. INTEGRILIN [Suspect]
     Indication: ACUTE CORONARY SYNDROME
     Dosage: ;IV
     Route: 042
  5. INTEGRILIN [Suspect]
     Indication: PERCUTANEOUS CORONARY INTERVENTION
     Dosage: ;IV
     Route: 042

REACTIONS (6)
  - IATROGENIC INJURY [None]
  - PERICARDIAL HAEMORRHAGE [None]
  - CARDIAC TAMPONADE [None]
  - PLATELET COUNT DECREASED [None]
  - VESSEL PERFORATION [None]
  - PULMONARY HAEMORRHAGE [None]
